FAERS Safety Report 4724687-9 (Version None)
Quarter: 2005Q3

REPORT INFORMATION
  Report Type: 
  Country: None (occurrence: None)
  Receive Date: 20050720
  Receipt Date: 20050720
  Transmission Date: 20060218
  Serious: Yes (Other)
  Sender: FDA-Public Use
  Company Number: None

PATIENT
  Age: 49 Year
  Sex: Male
  Weight: 97.5234 kg

DRUGS (1)
  1. MIRAPEX [Suspect]
     Indication: PARKINSON'S DISEASE
     Dosage: 1 1/2 TABS   3 TIMES DAILY   ORAL
     Route: 048
     Dates: start: 19970731, end: 20030831

REACTIONS (4)
  - COMPULSIONS [None]
  - ECONOMIC PROBLEM [None]
  - FAMILY STRESS [None]
  - GAMBLING [None]
